FAERS Safety Report 20297771 (Version 1)
Quarter: 2022Q1

REPORT INFORMATION
  Report Type: Spontaneous
  Country: ES (occurrence: ES)
  Receive Date: 20220105
  Receipt Date: 20220105
  Transmission Date: 20220423
  Serious: Yes (Other)
  Sender: FDA-Public Use
  Company Number: ES-ACTAVISPR-ACTA017238

PATIENT
  Age: 35 Year
  Sex: Male

DRUGS (2)
  1. CLOZAPINE [Suspect]
     Active Substance: CLOZAPINE
     Indication: Schizophrenia
     Dosage: 25 MILLIGRAM, ONCE A DAY
     Route: 065
     Dates: start: 200708
  2. OLANZAPINE [Suspect]
     Active Substance: OLANZAPINE
     Indication: Schizophrenia
     Dosage: 2.5 MG, ONCE A DAY
     Route: 065
     Dates: start: 200712, end: 200801

REACTIONS (2)
  - Hepatotoxicity [Recovered/Resolved]
  - Hepatic lesion [Recovered/Resolved]
